FAERS Safety Report 6300894-9 (Version None)
Quarter: 2009Q3

REPORT INFORMATION
  Report Type: 
  Country: None (occurrence: None)
  Receive Date: 20090806
  Receipt Date: 20090806
  Transmission Date: 20100115
  Serious: Yes (Hospitalization)
  Sender: FDA-Public Use
  Company Number: None

PATIENT
  Sex: Male
  Weight: 76.2043 kg

DRUGS (1)
  1. ACD-A SOLUTION [Suspect]
     Indication: MYCOSIS FUNGOIDES
     Dosage: 2.99 GRAMS/1000 ML DEXTROSE ONCE IV DRIP
     Route: 041
     Dates: start: 20090729, end: 20090729

REACTIONS (4)
  - DYSURIA [None]
  - OEDEMA [None]
  - THIRST [None]
  - WEIGHT INCREASED [None]
